FAERS Safety Report 6327433-0 (Version None)
Quarter: 2009Q3

REPORT INFORMATION
  Report Type: 
  Country: None (occurrence: None)
  Receive Date: 20090821
  Receipt Date: 20090810
  Transmission Date: 20100115
  Serious: Yes (Hospitalization, Other)
  Sender: FDA-Public Use
  Company Number: ADR11652009

PATIENT
  Age: 50 Year
  Sex: Male

DRUGS (8)
  1. RISPERIDONE [Suspect]
     Indication: TYPE 2 DIABETES MELLITUS
     Dosage: 2.6 MG, QD ORAL
     Route: 048
  2. METFORMIN HYDROCHLORIDE [Suspect]
     Indication: SCHIZOPHRENIA, PARANOID TYPE
     Dosage: 500 MG BID / 1000 MG, Q12H
  3. ARIPIPRAZOLE [Concomitant]
  4. GLICLAZIDE [Concomitant]
  5. OLANZAPINE [Concomitant]
  6. AMLODIPINE [Concomitant]
  7. PERINDOPRIL [Concomitant]
  8. SIMVASTATIN [Concomitant]

REACTIONS (9)
  - DRUG EFFECT DECREASED [None]
  - DRUG INTERACTION [None]
  - DRUG WITHDRAWAL SYNDROME [None]
  - HYPOGLYCAEMIA [None]
  - MENTAL DISORDER [None]
  - TREATMENT NONCOMPLIANCE [None]
  - TYPE 2 DIABETES MELLITUS [None]
  - URINARY INCONTINENCE [None]
  - WEIGHT DECREASED [None]
